FAERS Safety Report 22184724 (Version 2)
Quarter: 2023Q2

REPORT INFORMATION
  Report Type: Spontaneous
  Country: IT (occurrence: None)
  Receive Date: 20230407
  Receipt Date: 20230517
  Transmission Date: 20230721
  Serious: Yes (Other)
  Sender: FDA-Public Use
  Company Number: IT-ROCHE-3324208

PATIENT
  Age: 28 Year
  Sex: Female

DRUGS (1)
  1. ALECTINIB [Suspect]
     Active Substance: ALECTINIB
     Indication: Product used for unknown indication
     Route: 065
     Dates: start: 202108

REACTIONS (11)
  - Therapy partial responder [Unknown]
  - Disease progression [Unknown]
  - Bone lesion [Unknown]
  - Central nervous system lesion [Unknown]
  - Lymphangiosis carcinomatosa [Unknown]
  - Pleural thickening [Unknown]
  - Bone lesion [Unknown]
  - Brain tumour operation [Unknown]
  - Lymphangiosis carcinomatosa [Unknown]
  - Pleural thickening [Unknown]
  - Bone lesion [Unknown]
